FAERS Safety Report 20186070 (Version 3)
Quarter: 2022Q1

REPORT INFORMATION
  Report Type: Spontaneous
  Country: RU (occurrence: RU)
  Receive Date: 20211215
  Receipt Date: 20220203
  Transmission Date: 20220423
  Serious: Yes (Hospitalization, Other)
  Sender: FDA-Public Use
  Company Number: RU-ORGANON-O2112RUS000831

PATIENT
  Age: 53 Year
  Sex: Female

DRUGS (1)
  1. DIPROSPAN [Suspect]
     Active Substance: BETAMETHASONE DIPROPIONATE\BETAMETHASONE SODIUM PHOSPHATE
     Indication: Lumbar hernia
     Dosage: 1 TIME A WEEK (QW)
     Route: 030

REACTIONS (1)
  - Cellulitis [Recovered/Resolved]
